FAERS Safety Report 7440496-4 (Version None)
Quarter: 2011Q2

REPORT INFORMATION
  Report Type: 
  Country: None (occurrence: None)
  Receive Date: 20110427
  Receipt Date: 20110420
  Transmission Date: 20111010
  Serious: Yes (Hospitalization)
  Sender: FDA-Public Use
  Company Number: US-PERRIGO-11US003372

PATIENT
  Sex: Female
  Weight: 59.864 kg

DRUGS (3)
  1. IBUPROFEN [Suspect]
     Indication: PROCEDURAL PAIN
  2. IBUPROFEN [Suspect]
     Indication: SPINAL FRACTURE
  3. IBUPROFEN [Suspect]
     Indication: ARTHRALGIA
     Dosage: 200-400 MG, DAILY EVERY 4-6 HOURS AS NEEDED
     Route: 048
     Dates: start: 20090401, end: 20110419

REACTIONS (4)
  - HYPERSENSITIVITY [None]
  - URTICARIA [None]
  - INCORRECT DRUG ADMINISTRATION DURATION [None]
  - PRURITUS [None]
